FAERS Safety Report 9937185 (Version 2)
Quarter: 2014Q2

REPORT INFORMATION
  Report Type: Spontaneous
  Country: CH (occurrence: CH)
  Receive Date: 20140301
  Receipt Date: 20140404
  Transmission Date: 20141212
  Serious: Yes (Other)
  Sender: FDA-Public Use
  Company Number: CH-ASTRAZENECA-2014SE14344

PATIENT
  Age: 29573 Day
  Sex: Male

DRUGS (5)
  1. ZOLADEX [Suspect]
     Indication: PROSTATE CANCER
     Route: 058
  2. ASPIRIN CARDIO [Concomitant]
  3. BELOC ZOK [Concomitant]
  4. TRIATEC [Concomitant]
  5. PRADIF [Concomitant]

REACTIONS (1)
  - Hyperadrenalism [Not Recovered/Not Resolved]
